FAERS Safety Report 15482555 (Version 6)
Quarter: 2019Q2

REPORT INFORMATION
  Report Type: Spontaneous
  Country: US (occurrence: US)
  Receive Date: 20181010
  Receipt Date: 20190408
  Transmission Date: 20190711
  Serious: No
  Sender: FDA-Public Use
  Company Number: US-SA-2018SA277196

PATIENT
  Age: 75 Year
  Sex: Male
  Weight: 92.5 kg

DRUGS (2)
  1. KEVZARA [Suspect]
     Active Substance: SARILUMAB
     Indication: RHEUMATOID ARTHRITIS
     Dosage: 200 MG, QOW
     Route: 058
     Dates: start: 20180629, end: 20180815
  2. KEVZARA [Suspect]
     Active Substance: SARILUMAB
     Dosage: 150 MG, QOW
     Route: 058
     Dates: start: 20180907, end: 20190115

REACTIONS (8)
  - Incorrect dose administered [Unknown]
  - Injection site pain [Unknown]
  - Device use issue [Unknown]
  - Fatigue [Recovered/Resolved]
  - Injection site erythema [Recovered/Resolved]
  - Arthralgia [Recovered/Resolved]
  - Product dose omission [Unknown]
  - Platelet count decreased [Recovered/Resolved]

NARRATIVE: CASE EVENT DATE: 20180915
